FAERS Safety Report 25372770 (Version 2)
Quarter: 2025Q3

REPORT INFORMATION
  Report Type: Report from Study
  Country: US (occurrence: US)
  Receive Date: 20250529
  Receipt Date: 20250809
  Transmission Date: 20251021
  Serious: Yes (Other)
  Sender: ALEXION PHARMACEUTICALS
  Company Number: US-AstraZeneca-CH-00878957A

PATIENT
  Sex: Female
  Weight: 61.14 kg

DRUGS (1)
  1. CAPIVASERTIB [Suspect]
     Active Substance: CAPIVASERTIB
     Indication: Breast cancer female

REACTIONS (4)
  - Type 2 diabetes mellitus [Unknown]
  - Onychoclasis [Unknown]
  - Product dose omission in error [Unknown]
  - Blood glucose abnormal [Unknown]
